FAERS Safety Report 17108204 (Version 4)
Quarter: 2020Q1

REPORT INFORMATION
  Report Type: Report from Study
  Country: None (occurrence: CH)
  Receive Date: 20191204
  Receipt Date: 20200128
  Transmission Date: 20200409
  Serious: Yes (Hospitalization)
  Sender: FDA-Public Use
  Company Number: CH-ABBVIE-19K-151-3176672-00

PATIENT
  Age: 72 Year
  Sex: Male
  Weight: 72.4 kg

DRUGS (7)
  1. OXYCODONE/NALOXONE [Concomitant]
     Active Substance: NALOXONE HYDROCHLORIDE\OXYCODONE HYDROCHLORIDE
     Indication: PAIN
     Dosage: UNIT DOSE:15/7.5MG,IN THE MORNING AND IN THE EVENING
     Route: 048
  2. RIVOTRIL [Concomitant]
     Active Substance: CLONAZEPAM
     Indication: PAIN
     Dosage: IN THE MORNING AND EVENING
     Route: 048
  3. DUODOPA [Suspect]
     Active Substance: CARBIDOPA\LEVODOPA
     Dosage: MD:3.6ML, CRD: 5.5ML/H, CRN: 4ML/H, ED: 2.2ML 24H
     Route: 050
     Dates: start: 20190906
  4. DUODOPA [Suspect]
     Active Substance: CARBIDOPA\LEVODOPA
     Indication: PARKINSON^S DISEASE
     Route: 050
     Dates: start: 20150922, end: 20190205
  5. PROSCAR [Concomitant]
     Active Substance: FINASTERIDE
     Indication: BENIGN PROSTATIC HYPERPLASIA
  6. ALFUZOSIN [Concomitant]
     Active Substance: ALFUZOSIN
     Indication: BENIGN PROSTATIC HYPERPLASIA
  7. DUODOPA [Suspect]
     Active Substance: CARBIDOPA\LEVODOPA
     Dosage: MD: 4ML, CRD: 5ML/H, CRN: 3.5ML/H, ED 2.2ML 24H
     Route: 050
     Dates: start: 20190205, end: 20190906

REACTIONS (16)
  - Femur fracture [Recovered/Resolved]
  - Calcium deficiency [Unknown]
  - Vitamin B12 deficiency [Recovering/Resolving]
  - Urinary tract infection [Unknown]
  - Dopamine dysregulation syndrome [Not Recovered/Not Resolved]
  - Cognitive disorder [Not Recovered/Not Resolved]
  - Urge incontinence [Not Recovered/Not Resolved]
  - Polyneuropathy [Not Recovered/Not Resolved]
  - Depression [Unknown]
  - Vitamin D deficiency [Unknown]
  - Vitamin B2 deficiency [Unknown]
  - Orthostatic intolerance [Not Recovered/Not Resolved]
  - Urinary tract infection [Recovered/Resolved]
  - Fall [Recovered/Resolved]
  - Osteoporosis [Unknown]
  - Anaemia [Not Recovered/Not Resolved]

NARRATIVE: CASE EVENT DATE: 201901
